FAERS Safety Report 21662215 (Version 1)
Quarter: 2022Q4

REPORT INFORMATION
  Report Type: Report from Study
  Country: US (occurrence: US)
  Receive Date: 20221130
  Receipt Date: 20221130
  Transmission Date: 20230113
  Serious: Yes (Other)
  Sender: FDA-Public Use
  Company Number: US-PFIZER INC-202200197220

PATIENT
  Sex: Female

DRUGS (4)
  1. LYRICA [Suspect]
     Active Substance: PREGABALIN
     Indication: Occipital neuralgia
     Dosage: 75 MG, 4X/DAY, [SIG TEXT: TAKE 1 CAPSULE BY MOUTH 4 TIMES A DAY AS DIRECTED BY PHYSICIAN]
     Route: 048
  2. LYRICA [Suspect]
     Active Substance: PREGABALIN
     Dosage: 4 A DAY
     Route: 065
  3. LYRICA [Suspect]
     Active Substance: PREGABALIN
     Dosage: 3 PER DAY
     Route: 065
  4. LYRICA [Suspect]
     Active Substance: PREGABALIN
     Dosage: 150 MILLIGRAM, QID, (4 TIMES A DAY)
     Route: 048

REACTIONS (5)
  - Seizure [Unknown]
  - Drug dependence [Unknown]
  - Off label use [Unknown]
  - Headache [Unknown]
  - Illness [Unknown]
